FAERS Safety Report 4636477-6 (Version None)
Quarter: 2005Q2

REPORT INFORMATION
  Report Type: 
  Country: None (occurrence: None)
  Receive Date: 20050413
  Receipt Date: 20050413
  Transmission Date: 20051028
  Serious: Yes (Life-Threatening, Hospitalization, Disabling)
  Sender: FDA-Public Use
  Company Number: None

PATIENT
  Sex: Male
  Weight: 70 kg

DRUGS (2)
  1. FLOXAPEN [Suspect]
     Indication: NERVOUS SYSTEM DISORDER
     Dates: start: 20000115, end: 20000129
  2. ERYTHROSINE [Suspect]
     Dates: start: 20000205, end: 20000515

REACTIONS (15)
  - CONDITION AGGRAVATED [None]
  - DIFFICULTY IN WALKING [None]
  - DRUG HYPERSENSITIVITY [None]
  - DRUG TOXICITY [None]
  - DYSGRAPHIA [None]
  - DYSPHONIA [None]
  - DYSPNOEA [None]
  - FISTULA [None]
  - GENERAL PHYSICAL HEALTH DETERIORATION [None]
  - INTESTINAL HYPOMOTILITY [None]
  - MYASTHENIA GRAVIS [None]
  - NEUROTOXICITY [None]
  - OEDEMA PERIPHERAL [None]
  - PAIN [None]
  - PAIN IN EXTREMITY [None]
